FAERS Safety Report 23297832 (Version 1)
Quarter: 2023Q4

REPORT INFORMATION
  Report Type: Spontaneous
  Country: FR (occurrence: FR)
  Receive Date: 20231214
  Receipt Date: 20231214
  Transmission Date: 20240109
  Serious: Yes (Hospitalization, Other)
  Sender: FDA-Public Use
  Company Number: FR-PIRAMAL PHARMA LIMITED-2023-PPL-000215

PATIENT

DRUGS (18)
  1. EPINEPHRINE [Suspect]
     Active Substance: EPINEPHRINE
     Indication: Product used for unknown indication
     Dosage: 1 DOSAGE FORM
     Route: 012
  2. EPINEPHRINE [Suspect]
     Active Substance: EPINEPHRINE
     Indication: Product used for unknown indication
     Dosage: 15 ML OF LIDOCAINE 20MG/ ML WITH ADRENALIN
     Route: 012
  3. ASPIRIN [Suspect]
     Active Substance: ASPIRIN
     Indication: Product used for unknown indication
     Dosage: UNK
     Route: 012
  4. ENOXAPARIN SODIUM [Suspect]
     Active Substance: ENOXAPARIN SODIUM
     Indication: Product used for unknown indication
     Dosage: 40 MILLIGRAM/24 HOUR
     Route: 012
  5. KETOPROFEN [Suspect]
     Active Substance: KETOPROFEN
     Indication: Product used for unknown indication
     Dosage: 50 MG, QID
     Route: 012
  6. LIDOCAINE [Suspect]
     Active Substance: LIDOCAINE
     Dosage: 15 ML OF LIDOCAINE 20MG/ML WITH ADRENALIN
     Route: 012
  7. LIDOCAINE [Suspect]
     Active Substance: LIDOCAINE
     Dosage: 15 ML, UNK
     Route: 012
  8. LIDOCAINE [Suspect]
     Active Substance: LIDOCAINE
     Indication: Product used for unknown indication
     Dosage: 15 ML OF LIDOCAINE 20 MG/ ML WITH ADRENALIN
     Route: 012
  9. MORPHINE [Suspect]
     Active Substance: MORPHINE
     Indication: Product used for unknown indication
     Dosage: 2 MILLIGRAM, QID
     Route: 012
  10. NEFOPAM [Suspect]
     Active Substance: NEFOPAM
     Indication: Product used for unknown indication
     Dosage: 40 MILLIGRAM, QID
     Route: 012
  11. ACETAMINOPHEN [Suspect]
     Active Substance: ACETAMINOPHEN
     Indication: Product used for unknown indication
     Dosage: 4 G, QID
     Route: 012
  12. ACETAMINOPHEN [Suspect]
     Active Substance: ACETAMINOPHEN
     Dosage: 1 G, QID
     Route: 012
  13. ROPIVACAINE HYDROCHLORIDE [Suspect]
     Active Substance: ROPIVACAINE HYDROCHLORIDE
     Dosage: 15 MILLILITER
     Route: 012
  14. ROPIVACAINE HYDROCHLORIDE [Suspect]
     Active Substance: ROPIVACAINE HYDROCHLORIDE
     Dosage: ONE SLOW AND SPLIT INJECTION OF 20ML OF A SOLUTION OF 1MG/ ML
     Route: 012
  15. ROPIVACAINE HYDROCHLORIDE [Suspect]
     Active Substance: ROPIVACAINE HYDROCHLORIDE
     Indication: Product used for unknown indication
     Dosage: 20 MILLILITER, 20 ML OF A SOLUTION OF 1 MG/ML ROPIVACAINE AND 0.25 ?G/MLSUFENTANIL
     Route: 012
  16. SUFENTANIL [Suspect]
     Active Substance: SUFENTANIL
     Dosage: ONE SLOW AND SPLIT INJECTION OF 20 ML OF A SOLUTION OF 0.25MCG/ML
     Route: 012
  17. SUFENTANIL [Suspect]
     Active Substance: SUFENTANIL
     Dosage: 20 ML OF A SOLUTION OF 1 MG/ML ROPIVACAINE AND 0.25 ?G/MLSUFENTANIL
     Route: 012
  18. SUFENTANIL [Suspect]
     Active Substance: SUFENTANIL
     Indication: Product used for unknown indication
     Dosage: UNK
     Route: 012

REACTIONS (2)
  - Foetal heart rate abnormal [Unknown]
  - Foetal exposure during pregnancy [Unknown]
